FAERS Safety Report 8888234 (Version 1)
Quarter: 2012Q4

REPORT INFORMATION
  Report Type: Report from Study
  Country: US (occurrence: US)
  Receive Date: 20121106
  Receipt Date: 20121106
  Transmission Date: 20130627
  Serious: Yes (Other)
  Sender: FDA-Public Use
  Company Number: US-JNJFOC-20121100588

PATIENT
  Age: 54 None
  Sex: Male
  Weight: 74.84 kg

DRUGS (3)
  1. REMICADE [Suspect]
     Indication: CROHN^S DISEASE
     Route: 042
     Dates: start: 2009, end: 201201
  2. CYMBALTA [Concomitant]
     Indication: DEPRESSION
     Route: 048
     Dates: start: 2002
  3. CYMBALTA [Concomitant]
     Indication: PAIN
     Route: 048
     Dates: start: 2002

REACTIONS (7)
  - Systemic lupus erythematosus [Recovered/Resolved]
  - Osteoarthritis [Unknown]
  - Hypokinesia [Recovered/Resolved]
  - Rheumatoid arthritis [Unknown]
  - Arthralgia [Recovered/Resolved]
  - Pharyngeal disorder [Not Recovered/Not Resolved]
  - Adverse event [Not Recovered/Not Resolved]
